FAERS Safety Report 19265710 (Version 3)
Quarter: 2021Q3

REPORT INFORMATION
  Report Type: Spontaneous
  Country: US (occurrence: US)
  Receive Date: 20210517
  Receipt Date: 20210719
  Transmission Date: 20211014
  Serious: Yes (Other)
  Sender: FDA-Public Use
  Company Number: US-SUN PHARMACEUTICAL INDUSTRIES LTD-2021R1-296339

PATIENT
  Sex: Female

DRUGS (2)
  1. XELPROS [Suspect]
     Active Substance: LATANOPROST
     Dosage: UNK UNK, QD
     Route: 047
     Dates: start: 20190429, end: 20210504
  2. XELPROS [Suspect]
     Active Substance: LATANOPROST
     Indication: GLAUCOMA
     Dosage: UNK, BID
     Route: 065

REACTIONS (3)
  - Myocardial infarction [Unknown]
  - Product administration interrupted [Unknown]
  - Condition aggravated [Unknown]
